FAERS Safety Report 15710059 (Version 1)
Quarter: 2018Q4

REPORT INFORMATION
  Report Type: Spontaneous
  Country: DE (occurrence: DE)
  Receive Date: 20181211
  Receipt Date: 20181211
  Transmission Date: 20190205
  Serious: Yes (Other)
  Sender: FDA-Public Use
  Company Number: PHHY2018DE179699

PATIENT
  Sex: Male
  Weight: 55 kg

DRUGS (1)
  1. COTRIM [Suspect]
     Active Substance: SULFAMETHOXAZOLE\TRIMETHOPRIM
     Indication: PRODUCT USED FOR UNKNOWN INDICATION
     Dosage: 1 DF, UNK (3X2)
     Route: 065

REACTIONS (12)
  - Jaw disorder [Unknown]
  - Cardiac flutter [Unknown]
  - Depression [Unknown]
  - Fatigue [Unknown]
  - Nausea [Unknown]
  - Restlessness [Unknown]
  - Pallor [Unknown]
  - Tinnitus [Unknown]
  - Withdrawal syndrome [Unknown]
  - Apathy [Unknown]
  - Hyperhidrosis [Unknown]
  - Headache [Unknown]
